FAERS Safety Report 8932760 (Version 2)
Quarter: 2013Q2

REPORT INFORMATION
  Report Type: Spontaneous
  Country: US (occurrence: US)
  Receive Date: 20121129
  Receipt Date: 20130502
  Transmission Date: 20140414
  Serious: Yes (Hospitalization, Disabling)
  Sender: FDA-Public Use
  Company Number: US-BAYER-2012-124461

PATIENT
  Age: 22 Year
  Sex: Female

DRUGS (4)
  1. GIANVI [Suspect]
     Dosage: UNK
     Dates: start: 2006, end: 20120306
  2. YAZ [Suspect]
  3. YASMIN [Suspect]
  4. OCELLA [Suspect]

REACTIONS (6)
  - Pulmonary embolism [None]
  - Injury [None]
  - Pain [None]
  - Deformity [None]
  - Anxiety [None]
  - Anhedonia [None]
